FAERS Safety Report 5323987-1 (Version None)
Quarter: 2007Q2

REPORT INFORMATION
  Report Type: 
  Country: None (occurrence: None)
  Receive Date: 20070509
  Receipt Date: 20070509
  Transmission Date: 20071010
  Serious: Yes (Hospitalization)
  Sender: FDA-Public Use
  Company Number: None

PATIENT
  Sex: Male
  Weight: 54 kg

DRUGS (1)
  1. BUPROPION HYDROCHLORIDE [Suspect]
     Indication: INTENTIONAL DRUG MISUSE
     Dosage: 20 TABLETS ONCE PO
     Route: 048
     Dates: start: 20070227, end: 20070227

REACTIONS (8)
  - CONVULSION [None]
  - DYSARTHRIA [None]
  - DYSTONIA [None]
  - HALLUCINATION [None]
  - INCORRECT DOSE ADMINISTERED [None]
  - INTENTIONAL DRUG MISUSE [None]
  - MENTAL STATUS CHANGES [None]
  - TACHYCARDIA [None]
